FAERS Safety Report 19083961 (Version 1)
Quarter: 2021Q2

REPORT INFORMATION
  Report Type: Spontaneous
  Country: DE (occurrence: DE)
  Receive Date: 20210401
  Receipt Date: 20210401
  Transmission Date: 20210717
  Serious: Yes (Other)
  Sender: FDA-Public Use
  Company Number: DE-GILEAD-2021-0523269

PATIENT
  Age: 52 Year
  Sex: Female

DRUGS (5)
  1. DOLUTEGRAVIR [Concomitant]
     Active Substance: DOLUTEGRAVIR
  2. 3TC [Concomitant]
     Active Substance: LAMIVUDINE
  3. KALETRA [Concomitant]
     Active Substance: LOPINAVIR\RITONAVIR
  4. GENVOYA [Suspect]
     Active Substance: COBICISTAT\ELVITEGRAVIR\EMTRICITABINE\TENOFOVIR ALAFENAMIDE FUMARATE
     Indication: HIV INFECTION
     Dosage: UNK
     Route: 065
  5. COMBIVIR [Concomitant]
     Active Substance: LAMIVUDINE\ZIDOVUDINE

REACTIONS (6)
  - Acute kidney injury [Unknown]
  - Intentional product misuse [Not Recovered/Not Resolved]
  - Crush syndrome [Unknown]
  - Hypertension [Unknown]
  - Pneumonia [Unknown]
  - Rhabdomyolysis [Unknown]
